FAERS Safety Report 6741033-X (Version None)
Quarter: 2010Q2

REPORT INFORMATION
  Report Type: 
  Country: None (occurrence: None)
  Receive Date: 20100526
  Receipt Date: 20100517
  Transmission Date: 20101027
  Serious: Yes (Other)
  Sender: FDA-Public Use
  Company Number: US-JNJFOC-20100507054

PATIENT
  Sex: Female
  Weight: 81.65 kg

DRUGS (11)
  1. DURAGESIC-100 [Suspect]
     Indication: PAIN
     Route: 062
  2. DURAGESIC-100 [Suspect]
     Route: 062
  3. DURAGESIC-100 [Suspect]
     Route: 062
  4. FENTANYL CITRATE [Suspect]
     Indication: PAIN
     Route: 062
  5. FENTANYL CITRATE [Suspect]
     Route: 062
  6. NEURONTIN [Suspect]
     Indication: NEUROPATHY PERIPHERAL
     Route: 048
  7. NEURONTIN [Suspect]
     Indication: PAIN
     Route: 048
  8. METFORMIN HYDROCHLORIDE [Concomitant]
     Indication: DIABETES MELLITUS
     Route: 048
  9. VASOTEC [Concomitant]
     Indication: HYPERTENSION
     Route: 048
  10. LORCET-HD [Concomitant]
     Indication: BREAKTHROUGH PAIN
     Route: 048
  11. LEVOTHYROXINE SODIUM [Concomitant]
     Indication: THYROID DISORDER
     Route: 048

REACTIONS (7)
  - ABNORMAL LOSS OF WEIGHT [None]
  - BODY HEIGHT DECREASED [None]
  - DRUG DOSE OMISSION [None]
  - DYSARTHRIA [None]
  - DYSKINESIA [None]
  - NEUROPATHY PERIPHERAL [None]
  - PAIN [None]
